FAERS Safety Report 5262193-6 (Version None)
Quarter: 2007Q1

REPORT INFORMATION
  Report Type: 
  Country: None (occurrence: None)
  Receive Date: 20070311
  Receipt Date: 20070302
  Transmission Date: 20070707
  Serious: Yes (Other)
  Sender: FDA-Public Use
  Company Number: 2007UW00344

PATIENT
  Age: 37 Year
  Sex: Female
  Weight: 113.6 kg

DRUGS (14)
  1. SEROQUEL [Suspect]
     Indication: MENTAL DISORDER
     Route: 048
     Dates: start: 20010101, end: 20020101
  2. SEROQUEL [Suspect]
     Route: 048
     Dates: start: 20010101, end: 20020101
  3. SEROQUEL [Suspect]
     Route: 048
     Dates: start: 20010101
  4. SEROQUEL [Suspect]
     Route: 048
     Dates: start: 20040101
  5. SEROQUEL [Suspect]
     Route: 048
     Dates: start: 20050101
  6. ZYPREXA [Suspect]
     Indication: MENTAL DISORDER
     Route: 048
     Dates: start: 20010101
  7. ZYPREXA [Suspect]
     Route: 048
     Dates: start: 20040101, end: 20050101
  8. RISPERDAL [Suspect]
     Indication: MENTAL DISORDER
     Dates: start: 20011212, end: 20010101
  9. ABILIFY [Concomitant]
     Dates: start: 20060101
  10. GEODON [Concomitant]
  11. NAVANE [Concomitant]
     Dates: start: 20060101, end: 20060101
  12. THORAZINE [Concomitant]
     Route: 048
  13. CYMBALTA [Concomitant]
     Route: 048
  14. TRILEPTAL [Concomitant]
     Route: 048

REACTIONS (7)
  - BLOOD TRIGLYCERIDES INCREASED [None]
  - DIABETES MELLITUS NON-INSULIN-DEPENDENT [None]
  - HYPERGLYCAEMIA [None]
  - HYPERLIPIDAEMIA [None]
  - OBESITY [None]
  - SUICIDE ATTEMPT [None]
  - WEIGHT INCREASED [None]
